FAERS Safety Report 5073867-4 (Version None)
Quarter: 2006Q3

REPORT INFORMATION
  Report Type: 
  Country: None (occurrence: None)
  Receive Date: 20060808
  Receipt Date: 20060802
  Transmission Date: 20061208
  Serious: Yes (Hospitalization)
  Sender: FDA-Public Use
  Company Number: 2006AP03603

PATIENT
  Age: 70 Year
  Sex: Female

DRUGS (9)
  1. OMEPRAZOLE [Suspect]
     Indication: PEPTIC ULCER
     Route: 048
     Dates: start: 20060616
  2. ZESTRIL [Concomitant]
     Indication: HYPERTENSION
     Route: 048
  3. NORVASC [Concomitant]
     Indication: HYPERTENSION
     Route: 048
  4. DOGMATYL [Concomitant]
  5. TAGAMET [Concomitant]
  6. DEPAS [Concomitant]
     Route: 048
  7. EXCELASE(DIGESTIVE ENZYME PREPARATION CONTAINING SANCTASE) [Concomitant]
     Route: 048
  8. BLADDERON [Concomitant]
     Route: 048
  9. CERCINE [Concomitant]
     Route: 042

REACTIONS (3)
  - CARDIAC FAILURE [None]
  - RASH [None]
  - RESPIRATORY DEPRESSION [None]
